FAERS Safety Report 8949161 (Version 2)
Quarter: 2012Q4

REPORT INFORMATION
  Report Type: 
  Country: US (occurrence: US)
  Receive Date: 20121206
  Receipt Date: 20121220
  Transmission Date: 20130627
  Serious: Yes (Hospitalization)
  Sender: FDA-Public Use
  Company Number: US-ACTELION-A-NJ2012-75462

PATIENT
  Age: 69 Year
  Sex: Female

DRUGS (5)
  1. TRACLEER [Suspect]
     Indication: PULMONARY ARTERIAL HYPERTENSION
     Dosage: UNK
     Route: 048
  2. VELETRI [Suspect]
     Indication: PULMONARY ARTERIAL HYPERTENSION
     Dosage: 25 ng/kg, per min
     Route: 041
     Dates: start: 20111207
  3. VELETRI [Suspect]
     Dosage: 23 ng/kg, UNK
     Route: 041
  4. COUMADIN [Concomitant]
  5. ADCIRCA [Concomitant]

REACTIONS (6)
  - Spinal fracture [Recovered/Resolved]
  - Flushing [Recovered/Resolved]
  - Pain in jaw [Recovered/Resolved]
  - Feeling cold [Recovering/Resolving]
  - Rash macular [Recovering/Resolving]
  - Headache [Recovering/Resolving]
